FAERS Safety Report 6805757-8 (Version None)
Quarter: 2010Q2

REPORT INFORMATION
  Report Type: 
  Country: None (occurrence: None)
  Receive Date: 20100628
  Receipt Date: 20100623
  Transmission Date: 20101027
  Serious: Yes (Other)
  Sender: FDA-Public Use
  Company Number: GB-BRISTOL-MYERS SQUIBB COMPANY-15165616

PATIENT
  Sex: Male

DRUGS (6)
  1. ETOPOSIDE [Suspect]
     Route: 048
  2. LOMUSTINE [Suspect]
  3. COTRIM [Suspect]
  4. CHLORAMBUCIL [Suspect]
  5. DEXAMETHASONE [Suspect]
  6. ONDANSETRON [Suspect]

REACTIONS (1)
  - CARDIOMYOPATHY [None]
